FAERS Safety Report 19004145 (Version 2)
Quarter: 2023Q2

REPORT INFORMATION
  Report Type: Other
  Country: JP (occurrence: JP)
  Receive Date: 20210312
  Receipt Date: 20230417
  Transmission Date: 20230722
  Serious: Yes (Hospitalization, Other)
  Sender: FDA-Public Use
  Company Number: JP-ROCHE-2788122

PATIENT
  Age: 27 Year
  Sex: Female
  Weight: 75.8 kg

DRUGS (10)
  1. RITUXIMAB [Suspect]
     Active Substance: RITUXIMAB
     Indication: Diffuse large B-cell lymphoma recurrent
     Dosage: DOSAGE IS UNCERTAIN.
     Route: 041
     Dates: start: 202005
  2. TOCILIZUMAB [Suspect]
     Active Substance: TOCILIZUMAB
     Indication: Cytokine release syndrome
     Dosage: DOSAGE IS UNCERTAIN.
     Route: 065
     Dates: start: 20200712, end: 20200712
  3. TOCILIZUMAB [Suspect]
     Active Substance: TOCILIZUMAB
     Dosage: DOSAGE IS UNCERTAIN.
     Route: 065
     Dates: start: 20200713, end: 20200713
  4. TOCILIZUMAB [Suspect]
     Active Substance: TOCILIZUMAB
     Dosage: DOSAGE IS UNCERTAIN.
     Route: 065
     Dates: start: 20201014, end: 20201014
  5. KYMRIAH [Suspect]
     Active Substance: TISAGENLECLEUCEL
     Indication: Diffuse large B-cell lymphoma recurrent
     Dosage: 4.7 X10^8 CELLS, FULL DOSE ADMINISTERED
     Route: 041
     Dates: start: 20200707, end: 20200707
  6. GEMCITABINE [Concomitant]
     Active Substance: GEMCITABINE
     Indication: Cytokine release syndrome
     Dosage: DOSAGE IS UNCERTAIN.
     Route: 065
     Dates: start: 202005
  7. DEXAMETHASONE [Concomitant]
     Active Substance: DEXAMETHASONE
     Indication: Diffuse large B-cell lymphoma recurrent
     Dosage: DOSAGE IS UNCERTAIN.
     Route: 065
     Dates: start: 202005
  8. CISPLATIN [Concomitant]
     Active Substance: CISPLATIN
     Indication: Diffuse large B-cell lymphoma recurrent
     Dosage: DOSAGE IS UNCERTAIN.
     Route: 065
     Dates: start: 202005
  9. FLUDARABINE PHOSPHATE [Concomitant]
     Active Substance: FLUDARABINE PHOSPHATE
     Dosage: 75 MILLIGRAM/SQ. METER
     Route: 065
     Dates: start: 20200702
  10. CYCLOPHOSPHAMIDE [Concomitant]
     Active Substance: CYCLOPHOSPHAMIDE
     Dosage: 750 MILLIGRAM/SQ. METER
     Route: 065
     Dates: start: 20200702

REACTIONS (5)
  - Haemophagocytic lymphohistiocytosis [Recovered/Resolved]
  - Febrile neutropenia [Recovered/Resolved]
  - Platelet count decreased [Unknown]
  - Diffuse large B-cell lymphoma recurrent [Recovering/Resolving]
  - Malignant neoplasm progression [Recovering/Resolving]

NARRATIVE: CASE EVENT DATE: 20200804
